FAERS Safety Report 24773423 (Version 1)
Quarter: 2024Q4

REPORT INFORMATION
  Report Type: Report from Study
  Country: US (occurrence: US)
  Receive Date: 20241225
  Receipt Date: 20241225
  Transmission Date: 20250114
  Serious: Yes (Other)
  Sender: BAUSCH AND LOMB
  Company Number: US-BAUSCH-BL-2024-016070

PATIENT
  Age: 77 Year
  Sex: Female
  Weight: 67.192 kg

DRUGS (21)
  1. XIFAXAN [Suspect]
     Active Substance: RIFAXIMIN
     Indication: Product used for unknown indication
     Route: 048
     Dates: start: 20230201
  2. FAMOTIDINE [Suspect]
     Active Substance: FAMOTIDINE
     Indication: Product used for unknown indication
     Dosage: 90 TABLETS (1 TABLET ONCE A DAY)
     Route: 065
     Dates: start: 20230503
  3. 2 X CL ER POTASSIUM [Concomitant]
     Indication: Product used for unknown indication
     Dosage: 40 MEQ
     Route: 065
     Dates: start: 20240123
  4. AMIODARONE [Concomitant]
     Active Substance: AMIODARONE
     Indication: Product used for unknown indication
     Dosage: 1 TABLET TWICE A DAY
     Route: 048
  5. CETIRIZINE HYDROCHLORIDE [Concomitant]
     Active Substance: CETIRIZINE HYDROCHLORIDE
     Indication: Product used for unknown indication
     Route: 065
     Dates: start: 20230919
  6. ELIQUIS [Concomitant]
     Active Substance: APIXABAN
     Indication: Product used for unknown indication
     Dosage: 1 TABLET A DAY
     Route: 048
     Dates: start: 20230919
  7. ENULOSE [Concomitant]
     Active Substance: LACTULOSE
     Indication: Product used for unknown indication
     Route: 065
  8. FLUOXETINE [Concomitant]
     Active Substance: FLUOXETINE HYDROCHLORIDE
     Indication: Product used for unknown indication
     Dosage: 2 CAPSULE EVERY DAY
     Route: 048
     Dates: start: 20230919
  9. JARDIANCE [Concomitant]
     Active Substance: EMPAGLIFLOZIN
     Indication: Product used for unknown indication
     Dosage: 1 TABLET A DAY
     Route: 048
  10. MIRTAZAPINE [Concomitant]
     Active Substance: MIRTAZAPINE
     Indication: Product used for unknown indication
     Dosage: 1 TABLET AT BEDTIME
     Route: 048
  11. SIMBRINZA [Concomitant]
     Active Substance: BRIMONIDINE TARTRATE\BRINZOLAMIDE
     Indication: Product used for unknown indication
     Dosage: 1-0.2% (1 DROP TWICE A DAY)
     Route: 065
  12. SPIRONOLACTONE [Concomitant]
     Active Substance: SPIRONOLACTONE
     Indication: Product used for unknown indication
     Dosage: 90 TABLETS (1 TABLET A DAY)
     Route: 048
  13. TORSEMIDE [Concomitant]
     Active Substance: TORSEMIDE
     Indication: Product used for unknown indication
     Dosage: 2 TABLETS (100 MG) IN MORNING AND 2 TABLETS (100 MG) IN EVENING
     Route: 048
     Dates: start: 20230919
  14. VYZULTA [Concomitant]
     Active Substance: LATANOPROSTENE BUNOD
     Indication: Product used for unknown indication
     Dosage: 0.024 %
     Route: 065
  15. ZINC [Concomitant]
     Active Substance: ZINC
     Indication: Product used for unknown indication
     Route: 065
     Dates: start: 20240123
  16. CALTRATE + D3 PLUS MINERALS [Concomitant]
     Indication: Product used for unknown indication
     Dosage: 300 MG-800 UNIT-25MG-0.5 MG
     Route: 065
     Dates: start: 20220930
  17. ELDERBERRY ZINC VITAMIN C [Concomitant]
     Indication: Product used for unknown indication
     Dosage: 90-15 MG
     Route: 065
     Dates: start: 20220309
  18. VITAMINS [Concomitant]
     Active Substance: VITAMINS
     Indication: Product used for unknown indication
     Dosage: 1 TABLET A DAY
     Route: 048
     Dates: start: 20220930
  19. VITAMIN B COMPLEX [Concomitant]
     Active Substance: CYANOCOBALAMIN\DEXPANTHENOL\NIACINAMIDE\PYRIDOXINE HYDROCHLORIDE\RIBOFLAVIN 5^-PHOSPHATE SODIUM\THIA
     Indication: Product used for unknown indication
     Route: 065
     Dates: start: 20220309
  20. VITAMIN C [Concomitant]
     Active Substance: ASCORBIC ACID
     Indication: Product used for unknown indication
     Dosage: 1 TABLET A DAY
     Route: 048
     Dates: start: 20220309
  21. ZYRTEC [Concomitant]
     Active Substance: CETIRIZINE HYDROCHLORIDE
     Indication: Product used for unknown indication
     Dosage: 1 TABLET A DAY
     Route: 048
     Dates: start: 20220930

REACTIONS (7)
  - Oesophageal varices haemorrhage [Unknown]
  - Diverticulum intestinal [Unknown]
  - Diaphragmatic hernia [Unknown]
  - Duodenal polyp [Unknown]
  - Oesophageal disorder [Unknown]
  - Gastrointestinal disorder [Unknown]
  - Product use issue [Unknown]

NARRATIVE: CASE EVENT DATE: 20240123
